FAERS Safety Report 6060117-5 (Version None)
Quarter: 2009Q1

REPORT INFORMATION
  Report Type: 
  Country: None (occurrence: None)
  Receive Date: 20090128
  Receipt Date: 20090121
  Transmission Date: 20090719
  Serious: Yes (Life-Threatening, Hospitalization)
  Sender: FDA-Public Use
  Company Number: CERZ-1000465

PATIENT
  Age: 58 Year
  Sex: Male
  Weight: 72.5 kg

DRUGS (5)
  1. CEREZYME [Suspect]
     Indication: GAUCHER'S DISEASE
     Dosage: INTRAVENOUS
     Route: 042
     Dates: end: 20081101
  2. BISOPROLOL FUMARATE [Concomitant]
  3. KARDEGIC (ACETYLSALICYLATE LYSINE) [Concomitant]
  4. CRESTOR [Concomitant]
  5. PERINDOPRIL ERBUMINE [Concomitant]

REACTIONS (6)
  - ABDOMINAL PAIN [None]
  - CHEST PAIN [None]
  - DIARRHOEA [None]
  - EMBOLISM [None]
  - INTESTINAL INFARCTION [None]
  - VOMITING [None]
